FAERS Safety Report 16376201 (Version 3)
Quarter: 2019Q2

REPORT INFORMATION
  Report Type: Spontaneous
  Country: AU (occurrence: AU)
  Receive Date: 20190531
  Receipt Date: 20190628
  Transmission Date: 20190711
  Serious: Yes (Other)
  Sender: FDA-Public Use
  Company Number: AU-MYLANLABS-2019M1051288

PATIENT
  Age: 47 Year
  Sex: Male
  Weight: 128.9 kg

DRUGS (1)
  1. CLOZARIL [Suspect]
     Active Substance: CLOZAPINE
     Indication: SCHIZOPHRENIA
     Dosage: 300 MILLIGRAM
     Route: 048
     Dates: start: 20170609

REACTIONS (3)
  - Haemoglobin decreased [Not Recovered/Not Resolved]
  - Mean platelet volume decreased [Unknown]
  - Colon cancer [Unknown]

NARRATIVE: CASE EVENT DATE: 20190508
